FAERS Safety Report 23833718 (Version 1)
Quarter: 2024Q2

REPORT INFORMATION
  Report Type: Report from Study
  Country: US (occurrence: US)
  Receive Date: 20240509
  Receipt Date: 20240509
  Transmission Date: 20240715
  Serious: Yes (Other)
  Sender: FDA-Public Use
  Company Number: US-ABBVIE-5745367

PATIENT
  Sex: Male

DRUGS (1)
  1. SKYRIZI [Suspect]
     Active Substance: RISANKIZUMAB-RZAA
     Indication: Crohn^s disease
     Route: 058
     Dates: start: 20230727

REACTIONS (4)
  - Abscess neck [Recovered/Resolved]
  - Immune system disorder [Recovered/Resolved]
  - Tinea cruris [Unknown]
  - Influenza [Unknown]

NARRATIVE: CASE EVENT DATE: 20240101
